FAERS Safety Report 26056207 (Version 3)
Quarter: 2025Q4

REPORT INFORMATION
  Report Type: Spontaneous
  Country: US (occurrence: US)
  Receive Date: 20251118
  Receipt Date: 20251223
  Transmission Date: 20260117
  Serious: Yes (Other)
  Sender: PROCTER AND GAMBLE
  Company Number: US-PROCTER_AND_GAMBLE-PH25019596

PATIENT

DRUGS (1)
  1. CETYLPYRIDINIUM CHLORIDE\SODIUM FLUORIDE [Suspect]
     Active Substance: CETYLPYRIDINIUM CHLORIDE\SODIUM FLUORIDE
     Dosage: UNK

REACTIONS (1)
  - Lip squamous cell carcinoma [Unknown]
